FAERS Safety Report 14055041 (Version 2)
Quarter: 2017Q4

REPORT INFORMATION
  Report Type: Report from Study
  Country: BR (occurrence: BR)
  Receive Date: 20171006
  Receipt Date: 20171026
  Transmission Date: 20180321
  Serious: Yes (Other)
  Sender: FDA-Public Use
  Company Number: BR-ROCHE-2004206

PATIENT
  Sex: Female
  Weight: 65 kg

DRUGS (2)
  1. XOLAIR [Suspect]
     Active Substance: OMALIZUMAB
     Indication: URTICARIA
     Dosage: 2 DF (ON BELLY)
     Route: 065
     Dates: start: 201702, end: 201704
  2. PURAN [Concomitant]
     Active Substance: LEVOTHYROXINE SODIUM
     Indication: HYPOTHYROIDISM
     Dosage: (STARTED 7 YEARS AGO)
     Route: 048

REACTIONS (4)
  - Hypersensitivity [Unknown]
  - Swelling [Recovering/Resolving]
  - Influenza [Unknown]
  - Rash [Recovering/Resolving]
